FAERS Safety Report 4591575-0 (Version None)
Quarter: 2005Q1

REPORT INFORMATION
  Report Type: 
  Country: None (occurrence: None)
  Receive Date: 20050223
  Receipt Date: 20050214
  Transmission Date: 20050727
  Serious: Yes (Hospitalization)
  Sender: FDA-Public Use
  Company Number: GXKR2005NL00598

PATIENT
  Age: 7 Year
  Sex: Male
  Weight: 30.7 kg

DRUGS (2)
  1. ISONIAZID [Suspect]
     Indication: PROPHYLAXIS
     Dosage: 150 MG, QD,
  2. RIFAMPICIN [Concomitant]

REACTIONS (4)
  - DIPLOPIA [None]
  - OPTIC DISCS BLURRED [None]
  - STRABISMUS [None]
  - VITH NERVE PARALYSIS [None]
